FAERS Safety Report 8968353 (Version 1)
Quarter: 2012Q4

REPORT INFORMATION
  Report Type: 
  Country: US (occurrence: US)
  Receive Date: 20121218
  Receipt Date: 20121218
  Transmission Date: 20130627
  Serious: No
  Sender: FDA-Public Use
  Company Number: US-BRISTOL-MYERS SQUIBB COMPANY-16756371

PATIENT
  Age: 55 Year
  Sex: Male
  Weight: 74.83 kg

DRUGS (2)
  1. ABILIFY TABS 10 MG [Suspect]
     Indication: PANIC ATTACK
     Dosage: 5 mg,daily 4 months ago
1G65413A
  2. ABILIFY TABS 10 MG [Suspect]
     Indication: ANXIETY
     Dosage: 5 mg,daily 4 months ago
1G65413A

REACTIONS (1)
  - Drug ineffective [Unknown]
